FAERS Safety Report 4707437-1 (Version None)
Quarter: 2005Q3

REPORT INFORMATION
  Report Type: 
  Country: None (occurrence: None)
  Receive Date: 20050706
  Receipt Date: 20050502
  Transmission Date: 20060218
  Serious: Yes (Death)
  Sender: FDA-Public Use
  Company Number: 2005UW06731

PATIENT
  Age: 6782 Day
  Sex: Female
  Weight: 52.2 kg

DRUGS (10)
  1. SEROQUEL [Suspect]
     Indication: DEPRESSION
     Route: 048
  2. SEROQUEL [Suspect]
     Route: 048
  3. CANNABINOIDS [Suspect]
  4. BENZOYLEGONINE [Suspect]
  5. BENZODIAZEPINES [Concomitant]
  6. DIAZEPAM [Suspect]
  7. CITALOPRAM HYDROBROMIDE [Suspect]
  8. CLONAZEPAM [Concomitant]
  9. GABITRIL [Concomitant]
  10. LAMICTAL [Concomitant]

REACTIONS (1)
  - DRUG TOXICITY [None]
